FAERS Safety Report 16539839 (Version 2)
Quarter: 2020Q2

REPORT INFORMATION
  Report Type: Spontaneous
  Country: PT (occurrence: PT)
  Receive Date: 20190708
  Receipt Date: 20200624
  Transmission Date: 20200713
  Serious: Yes (Hospitalization, Other)
  Sender: FDA-Public Use
  Company Number: PT-MYLANLABS-2019M1056332

PATIENT
  Age: 57 Year
  Sex: Male

DRUGS (10)
  1. METAMIZOLE [Concomitant]
     Active Substance: METAMIZOLE
     Indication: PRODUCT USED FOR UNKNOWN INDICATION
     Dosage: 575 MILLIGRAM, Q8H
     Route: 048
     Dates: start: 20170724, end: 20180818
  2. ENOXAPARIN                         /01708202/ [Concomitant]
     Active Substance: ENOXAPARIN SODIUM
     Indication: PRODUCT USED FOR UNKNOWN INDICATION
     Dosage: 40 MG, TOTAL DOSE (1 ADMINISTARTION)
     Route: 058
  3. GENTAMYCIN                         /00047101/ [Concomitant]
     Active Substance: GENTAMICIN
     Indication: PRODUCT USED FOR UNKNOWN INDICATION
     Dosage: 240 MG, ONCE DAILY (EV)
     Route: 065
     Dates: start: 20170724, end: 20170817
  4. ESOMEPRAZOLE                       /01479302/ [Concomitant]
     Active Substance: ESOMEPRAZOLE
     Indication: PRODUCT USED FOR UNKNOWN INDICATION
     Dosage: 20 MG, UNKNOWN FREQ
     Route: 048
     Dates: start: 20170707, end: 20170719
  5. POTASSIUM CHLORIDE. [Concomitant]
     Active Substance: POTASSIUM CHLORIDE
     Indication: PRODUCT USED FOR UNKNOWN INDICATION
     Dosage: 40 MILLIEQUIVALENT, QD
     Route: 065
     Dates: start: 20170721, end: 20170724
  6. CLARITHROMYCIN. [Concomitant]
     Active Substance: CLARITHROMYCIN
     Dosage: UNK UNK, UNKNOWN FREQ.
     Route: 048
     Dates: start: 20170718, end: 20170721
  7. AMOXICILLIN/CLAVULANIC ACID [Suspect]
     Active Substance: AMOXICILLIN\CLAVULANIC ACID
     Indication: KLEBSIELLA INFECTION
     Dosage: UNK, UNKNOWN FREQ.
     Route: 065
  8. CLARITHROMYCIN. [Concomitant]
     Active Substance: CLARITHROMYCIN
     Indication: PNEUMONIA KLEBSIELLA
     Dosage: UNK, UNKNOWN FREQ.
     Route: 065
  9. AMOXICILLIN/CLAVULANIC ACID [Suspect]
     Active Substance: AMOXICILLIN\CLAVULANIC ACID
     Dosage: 1200 MILLIGRAM, Q8H
     Route: 042
     Dates: start: 20170717, end: 20170727
  10. ALPRAZOLAM. [Concomitant]
     Active Substance: ALPRAZOLAM
     Indication: PRODUCT USED FOR UNKNOWN INDICATION
     Dosage: 0.25 MG, AT BEDTIME
     Route: 048
     Dates: start: 20170721, end: 20170818

REACTIONS (7)
  - Klebsiella infection [Unknown]
  - Infectious pleural effusion [Unknown]
  - Drug ineffective [Unknown]
  - Condition aggravated [Unknown]
  - Haemoptysis [Unknown]
  - Chest pain [Unknown]
  - Pyrexia [Unknown]
